FAERS Safety Report 13697506 (Version 1)
Quarter: 2017Q2

REPORT INFORMATION
  Report Type: Spontaneous
  Country: GB (occurrence: GB)
  Receive Date: 20170628
  Receipt Date: 20170628
  Transmission Date: 20170830
  Serious: Yes (Other)
  Sender: FDA-Public Use
  Company Number: GB-GLAXOSMITHKLINE-GB2017098981

PATIENT
  Sex: Male

DRUGS (2)
  1. ROPINIROLE. [Suspect]
     Active Substance: ROPINIROLE
     Indication: PARKINSONISM
     Dosage: UNK
     Route: 065
  2. LEVODOPA [Concomitant]
     Active Substance: LEVODOPA
     Indication: PARKINSONISM
     Dosage: UNK

REACTIONS (1)
  - Psychotic disorder [Unknown]
